FAERS Safety Report 4951979-0 (Version None)
Quarter: 2006Q1

REPORT INFORMATION
  Report Type: 
  Country: None (occurrence: None)
  Receive Date: 20060323
  Receipt Date: 20060316
  Transmission Date: 20060701
  Serious: Yes (Hospitalization)
  Sender: FDA-Public Use
  Company Number: AU-ROCHE-440701

PATIENT
  Age: 82 Year
  Sex: Female

DRUGS (3)
  1. CEFTRIAXONE [Suspect]
     Route: 042
     Dates: start: 20051020, end: 20051025
  2. ROXITHROMYCIN [Suspect]
     Route: 048
     Dates: start: 20051017, end: 20051028
  3. CEFACLOR [Suspect]
     Route: 048
     Dates: start: 20051017, end: 20051020

REACTIONS (2)
  - BLOOD CREATININE INCREASED [None]
  - NEPHRITIS INTERSTITIAL [None]
